FAERS Safety Report 10735684 (Version 1)
Quarter: 2015Q1

REPORT INFORMATION
  Report Type: Spontaneous
  Country: US (occurrence: None)
  Receive Date: 20150120
  Receipt Date: 20150120
  Transmission Date: 20150721
  Serious: Yes (Hospitalization)
  Sender: FDA-Public Use
  Company Number: ABR_01928_2015

PATIENT
  Age: 36 Year
  Sex: Male

DRUGS (4)
  1. LAMOTRIGINE. [Suspect]
     Active Substance: LAMOTRIGINE
     Indication: PRODUCT USED FOR UNKNOWN INDICATION
     Dosage: NOT THE PRESCRIBED DOSE
     Route: 048
  2. EMTRICITABINE [Concomitant]
     Active Substance: EMTRICITABINE
  3. TENOFOVIR [Concomitant]
     Active Substance: TENOFOVIR
  4. RALTEGRAVIR [Concomitant]
     Active Substance: RALTEGRAVIR

REACTIONS (16)
  - Respiratory rate increased [None]
  - Generalised tonic-clonic seizure [None]
  - Electrocardiogram QRS complex prolonged [None]
  - Mental disorder [None]
  - Blood glucose increased [None]
  - Intentional overdose [None]
  - Ventricular tachyarrhythmia [None]
  - Dyskinesia [None]
  - Pupillary reflex impaired [None]
  - Oxygen saturation decreased [None]
  - Sinus tachycardia [None]
  - Bundle branch block right [None]
  - Blood pressure systolic increased [None]
  - Quadriplegia [None]
  - Critical illness myopathy [None]
  - Status epilepticus [None]
